FAERS Safety Report 6882922-5 (Version None)
Quarter: 2010Q3

REPORT INFORMATION
  Report Type: 
  Country: None (occurrence: None)
  Receive Date: 20100727
  Receipt Date: 20100520
  Transmission Date: 20110219
  Serious: Yes (Hospitalization, Other)
  Sender: FDA-Public Use
  Company Number: 20108658

PATIENT
  Age: 67 Year
  Sex: Male
  Weight: 80 kg

DRUGS (9)
  1. BACLOFEN [Suspect]
     Indication: MUSCLE SPASTICITY
     Dosage: MCGL DAILY, INTRATHECAL
     Route: 037
  2. TANATRIL [Concomitant]
  3. AZELASTINE HCL [Concomitant]
  4. KENEI G ENEMA [Concomitant]
  5. TANATRIL [Concomitant]
  6. WARFARIN [Concomitant]
  7. PURSENNID [Concomitant]
  8. TELEMINSOFT [Concomitant]
  9. LAXOBERON [Concomitant]

REACTIONS (4)
  - DECUBITUS ULCER [None]
  - MUSCLE SPASMS [None]
  - PAIN IN EXTREMITY [None]
  - URINARY TRACT INFECTION [None]
